FAERS Safety Report 6656251-9 (Version None)
Quarter: 2010Q1

REPORT INFORMATION
  Report Type: 
  Country: None (occurrence: None)
  Receive Date: 20100329
  Receipt Date: 20100322
  Transmission Date: 20100710
  Serious: Yes (Death, Other)
  Sender: FDA-Public Use
  Company Number: US-ELI_LILLY_AND_COMPANY-US201003006540

PATIENT
  Age: 75 Year
  Sex: Female

DRUGS (2)
  1. ALIMTA [Suspect]
     Indication: OVARIAN CANCER
  2. GEMZAR [Suspect]
     Indication: OVARIAN CANCER

REACTIONS (3)
  - DEATH [None]
  - DRUG INEFFECTIVE [None]
  - FEBRILE NEUTROPENIA [None]
